FAERS Safety Report 5001893-X (Version None)
Quarter: 2006Q2

REPORT INFORMATION
  Report Type: 
  Country: None (occurrence: None)
  Receive Date: 20060515
  Receipt Date: 20050421
  Transmission Date: 20061013
  Serious: Yes (Disabling)
  Sender: FDA-Public Use
  Company Number: US-MERCK-0504USA04265

PATIENT
  Age: 36 Year
  Sex: Male
  Weight: 75 kg

DRUGS (1)
  1. VIOXX [Suspect]
     Indication: BACK PAIN
     Route: 048

REACTIONS (7)
  - BACK INJURY [None]
  - CEREBROVASCULAR ACCIDENT [None]
  - DRY MOUTH [None]
  - EYE DISORDER [None]
  - INJURY [None]
  - JOINT INJURY [None]
  - THROMBOSIS [None]
